FAERS Safety Report 25576410 (Version 1)
Quarter: 2025Q3

REPORT INFORMATION
  Report Type: Spontaneous
  Country: TR (occurrence: TR)
  Receive Date: 20250718
  Receipt Date: 20250718
  Transmission Date: 20251021
  Serious: Yes (Death, Other)
  Sender: AMGEN
  Company Number: TR-AMGEN-TURSP2025137564

PATIENT

DRUGS (5)
  1. FILGRASTIM [Suspect]
     Active Substance: FILGRASTIM
     Indication: Haematopoietic stem cell mobilisation
     Route: 065
  2. VALACYCLOVIR [Concomitant]
     Active Substance: VALACYCLOVIR HYDROCHLORIDE
     Dosage: 500 MILLIGRAM, QD, ON DAY-7
  3. LEVOFLOXACIN [Concomitant]
     Active Substance: LEVOFLOXACIN
     Dosage: 500 MILLIGRAM, QD (ON DAY 5)
  4. FLUCONAZOLE [Concomitant]
     Active Substance: FLUCONAZOLE
     Dosage: 100 MILLIGRAM, QD
  5. PLERIXAFOR [Concomitant]
     Active Substance: PLERIXAFOR

REACTIONS (9)
  - Death [Fatal]
  - Febrile neutropenia [Unknown]
  - Staphylococcal infection [Unknown]
  - Alpha haemolytic streptococcal infection [Unknown]
  - Escherichia infection [Unknown]
  - Clostridium difficile infection [Unknown]
  - Klebsiella infection [Unknown]
  - Candida infection [Unknown]
  - Bacterial infection [Unknown]
